FAERS Safety Report 14010975 (Version 1)
Quarter: 2017Q3

REPORT INFORMATION
  Report Type: Spontaneous
  Country: US (occurrence: US)
  Receive Date: 20170926
  Receipt Date: 20170926
  Transmission Date: 20171128
  Serious: No
  Sender: FDA-Public Use
  Company Number: US-PFIZER INC-2017367105

PATIENT
  Sex: Female

DRUGS (2)
  1. SODIUM CHLORIDE. [Suspect]
     Active Substance: SODIUM CHLORIDE
     Dosage: UNK
  2. SODIUM CHLORIDE. [Suspect]
     Active Substance: SODIUM CHLORIDE
     Dosage: 500 ML, UNK

REACTIONS (5)
  - Reaction to excipient [Unknown]
  - Hypotension [Unknown]
  - Condition aggravated [Unknown]
  - Drug prescribing error [Unknown]
  - Endocrine disorder [Unknown]
